FAERS Safety Report 20071057 (Version 1)
Quarter: 2021Q4

REPORT INFORMATION
  Report Type: Spontaneous
  Country: JP (occurrence: JP)
  Receive Date: 20211115
  Receipt Date: 20211115
  Transmission Date: 20220303
  Serious: Yes (Hospitalization, Other)
  Sender: FDA-Public Use
  Company Number: JP-NOVARTISPH-NVSJ2021JP018649

PATIENT
  Age: 42 Year
  Sex: Female

DRUGS (2)
  1. CYCLOSPORINE [Suspect]
     Active Substance: CYCLOSPORINE
     Indication: Dermatitis atopic
     Dosage: UNK
     Route: 065
  2. CYCLOSPORINE [Suspect]
     Active Substance: CYCLOSPORINE
     Dosage: 150 MG, QD
     Route: 065

REACTIONS (7)
  - Nephrotic syndrome [Unknown]
  - Oedema peripheral [Unknown]
  - Haematuria [Unknown]
  - Proteinuria [Unknown]
  - Blood pressure increased [Unknown]
  - Glomerulonephritis membranous [Unknown]
  - Hepatic function abnormal [Unknown]
